FAERS Safety Report 14940572 (Version 19)
Quarter: 2019Q3

REPORT INFORMATION
  Report Type: Report from Study
  Country: CA (occurrence: CA)
  Receive Date: 20180525
  Receipt Date: 20190813
  Transmission Date: 20191004
  Serious: Yes (Hospitalization, Other)
  Sender: FDA-Public Use
  Company Number: CA-BRISTOL-MYERS SQUIBB COMPANY-BMS-2017-076975

PATIENT
  Age: 79 Year
  Sex: Female

DRUGS (11)
  1. TOLTER [Concomitant]
     Active Substance: TOLTERODINE TARTRATE
     Indication: PRODUCT USED FOR UNKNOWN INDICATION
     Dosage: UNK
     Route: 065
  2. DABIGATRAN [Concomitant]
     Active Substance: DABIGATRAN
     Indication: PRODUCT USED FOR UNKNOWN INDICATION
     Dosage: UNK
     Route: 065
  3. ABATACEPT [Suspect]
     Active Substance: ABATACEPT
     Indication: RHEUMATOID ARTHRITIS
     Dosage: 750 MILLIGRAM, Q4WK
     Route: 042
     Dates: start: 20161125, end: 20190315
  4. AMLODIPINE [Concomitant]
     Active Substance: AMLODIPINE BESYLATE
     Indication: PRODUCT USED FOR UNKNOWN INDICATION
     Dosage: UNK
     Route: 065
  5. LEVOTHYROXIN [Concomitant]
     Active Substance: LEVOTHYROXINE
     Indication: PRODUCT USED FOR UNKNOWN INDICATION
     Dosage: UNK
     Route: 065
  6. DIGOXIN. [Concomitant]
     Active Substance: DIGOXIN
     Indication: PRODUCT USED FOR UNKNOWN INDICATION
     Route: 065
  7. LEUCOVORIN                         /00566701/ [Concomitant]
     Active Substance: LEUCOVORIN
     Indication: PRODUCT USED FOR UNKNOWN INDICATION
     Dosage: UNK
     Route: 065
  8. FUCIDIN (FUSIDIC ACID) [Concomitant]
     Active Substance: FUSIDIC ACID
     Indication: PRODUCT USED FOR UNKNOWN INDICATION
     Dosage: UNK
     Route: 065
  9. EMTEC [Concomitant]
     Indication: PRODUCT USED FOR UNKNOWN INDICATION
     Dosage: UNK
     Route: 065
  10. LASIX [Concomitant]
     Active Substance: FUROSEMIDE
     Indication: PRODUCT USED FOR UNKNOWN INDICATION
     Dosage: UNK
     Route: 065
  11. ATORVASTATIN [Concomitant]
     Active Substance: ATORVASTATIN
     Indication: PRODUCT USED FOR UNKNOWN INDICATION
     Dosage: UNK
     Route: 065

REACTIONS (34)
  - Pneumonia [Not Recovered/Not Resolved]
  - Atrial fibrillation [Unknown]
  - Influenza like illness [Recovering/Resolving]
  - Nasopharyngitis [Unknown]
  - Musculoskeletal chest pain [Unknown]
  - Treatment failure [Not Recovered/Not Resolved]
  - Erythema [Unknown]
  - Abdominal pain lower [Recovering/Resolving]
  - Malaise [Unknown]
  - Pyrexia [Unknown]
  - Oral infection [Recovering/Resolving]
  - Diarrhoea [Unknown]
  - Back pain [Unknown]
  - Knee operation [Recovering/Resolving]
  - Urinary tract infection [Unknown]
  - Procedural pain [Unknown]
  - Heart rate irregular [Recovered/Resolved]
  - Thermal burn [Unknown]
  - Productive cough [Unknown]
  - Skin discolouration [Unknown]
  - Renal impairment [Unknown]
  - Sepsis [Unknown]
  - Oral candidiasis [Unknown]
  - Kidney infection [Unknown]
  - Swelling [Unknown]
  - Constipation [Unknown]
  - Localised infection [Recovering/Resolving]
  - Dyspnoea [Unknown]
  - Vomiting [Unknown]
  - Breath sounds abnormal [Unknown]
  - Lung disorder [Unknown]
  - Joint injury [Recovered/Resolved]
  - Blister [Unknown]
  - Night sweats [Unknown]

NARRATIVE: CASE EVENT DATE: 20180802
